FAERS Safety Report 5444982-8 (Version None)
Quarter: 2007Q3

REPORT INFORMATION
  Report Type: 
  Country: None (occurrence: None)
  Receive Date: 20070906
  Receipt Date: 20070827
  Transmission Date: 20080115
  Serious: Yes (Other)
  Sender: FDA-Public Use
  Company Number: US-JNJFOC-20070701674

PATIENT
  Sex: Male
  Weight: 64.41 kg

DRUGS (7)
  1. REMICADE [Suspect]
     Route: 042
  2. REMICADE [Suspect]
     Route: 042
  3. REMICADE [Suspect]
     Route: 042
  4. REMICADE [Suspect]
     Route: 042
  5. REMICADE [Suspect]
     Indication: IRITIS
     Route: 042
  6. PREDNISOLONE [Concomitant]
  7. PREDNISOLONE [Concomitant]
     Indication: IRITIS

REACTIONS (1)
  - OPTIC NEURITIS [None]
